FAERS Safety Report 25886790 (Version 1)
Quarter: 2025Q4

REPORT INFORMATION
  Report Type: Other
  Country: US (occurrence: US)
  Receive Date: 20251006
  Receipt Date: 20251006
  Transmission Date: 20260118
  Serious: Yes (Other)
  Sender: TRAVERE THERAPEUTICS
  Company Number: US-TRAVERE-2025TVT01782

PATIENT
  Age: 16 Year
  Sex: Female

DRUGS (1)
  1. FILSPARI [Suspect]
     Active Substance: SPARSENTAN
     Indication: Acute kidney injury
     Route: 048
     Dates: start: 202508

REACTIONS (3)
  - Ill-defined disorder [Unknown]
  - Product use in unapproved indication [Unknown]
  - Off label use [Unknown]
